FAERS Safety Report 22279555 (Version 1)
Quarter: 2023Q2

REPORT INFORMATION
  Report Type: Report from Study
  Country: US (occurrence: None)
  Receive Date: 20230503
  Receipt Date: 20230503
  Transmission Date: 20230721
  Serious: Yes (Hospitalization)
  Sender: FDA-Public Use
  Company Number: US-Eisai Medical Research-EC-2023-138205

PATIENT
  Age: 85 Year
  Sex: Male

DRUGS (1)
  1. LENVIMA [Suspect]
     Active Substance: LENVATINIB
     Indication: Thyroid cancer
     Route: 048
     Dates: start: 20230407, end: 20230417

REACTIONS (7)
  - Mobility decreased [Recovering/Resolving]
  - Urinary tract infection [Recovering/Resolving]
  - Blood pressure increased [Unknown]
  - Epistaxis [Unknown]
  - Aphonia [Recovering/Resolving]
  - Fatigue [Unknown]
  - Pneumonia [Unknown]

NARRATIVE: CASE EVENT DATE: 20230401
